FAERS Safety Report 12137205 (Version 1)
Quarter: 2016Q1

REPORT INFORMATION
  Report Type: Spontaneous
  Country: US (occurrence: US)
  Receive Date: 20160302
  Receipt Date: 20160302
  Transmission Date: 20160526
  Serious: No
  Sender: FDA-Public Use
  Company Number: US-INSYS THERAPEUTICS, INC-INS201510-000448

PATIENT
  Sex: Male
  Weight: 58.96 kg

DRUGS (4)
  1. SUBSYS [Suspect]
     Active Substance: FENTANYL
     Dates: start: 201509
  2. SUBSYS [Suspect]
     Active Substance: FENTANYL
     Indication: BREAKTHROUGH PAIN
     Dates: start: 201507
  3. SUBSYS [Suspect]
     Active Substance: FENTANYL
     Dates: start: 201510
  4. SUBSYS [Suspect]
     Active Substance: FENTANYL
     Dates: start: 201508

REACTIONS (2)
  - Product quality issue [Unknown]
  - Dysphonia [Recovering/Resolving]

NARRATIVE: CASE EVENT DATE: 2015
